FAERS Safety Report 4371119-9 (Version None)
Quarter: 2004Q2

REPORT INFORMATION
  Report Type: 
  Country: None (occurrence: None)
  Receive Date: 20040604
  Receipt Date: 20011025
  Transmission Date: 20050107
  Serious: Yes (Hospitalization)
  Sender: FDA-Public Use
  Company Number: US-MERCK-01104477

PATIENT
  Age: 52 Year
  Sex: Male
  Weight: 186 kg

DRUGS (8)
  1. [THERAPY UNSPECIFIED] [Concomitant]
     Route: 065
  2. DARVOCET-N 100 [Concomitant]
     Route: 065
  3. CELEBREX [Concomitant]
     Route: 065
  4. FUROSEMIDE [Concomitant]
     Indication: OEDEMA PERIPHERAL
     Route: 065
  5. OXYGEN [Concomitant]
     Route: 065
  6. KLOR-CON [Concomitant]
     Route: 065
  7. VIOXX [Suspect]
     Indication: LOCALISED OSTEOARTHRITIS
     Route: 048
     Dates: start: 20000131, end: 20000201
  8. VIOXX [Suspect]
     Indication: INTERVERTEBRAL DISC DISORDER
     Route: 048
     Dates: start: 20000131, end: 20000201

REACTIONS (18)
  - BACK INJURY [None]
  - CARDIOMEGALY [None]
  - CARDIOVASCULAR DISORDER [None]
  - CELLULITIS [None]
  - CHLORACNE [None]
  - COR PULMONALE [None]
  - DEPRESSION [None]
  - ERYTHEMA [None]
  - EXTREMITY NECROSIS [None]
  - GENERALISED OEDEMA [None]
  - GLAUCOMA [None]
  - GLUCOSE TOLERANCE IMPAIRED [None]
  - HYPOAESTHESIA [None]
  - PICKWICKIAN SYNDROME [None]
  - POLYCYTHAEMIA [None]
  - RESPIRATORY FAILURE [None]
  - RHINITIS [None]
  - SLEEP APNOEA SYNDROME [None]
